FAERS Safety Report 11325822 (Version 2)
Quarter: 2015Q3

REPORT INFORMATION
  Report Type: Spontaneous
  Country: JP (occurrence: JP)
  Receive Date: 20150731
  Receipt Date: 20150807
  Transmission Date: 20151125
  Serious: Yes (Hospitalization, Other)
  Sender: FDA-Public Use
  Company Number: JP-PFIZER INC-2015251836

PATIENT
  Age: 54 Year
  Sex: Male
  Weight: 57 kg

DRUGS (31)
  1. CAMPTO [Suspect]
     Active Substance: IRINOTECAN
     Dosage: 144.8 MG/M2 (240 MG), CYCLIC (1X/DAY)
     Route: 041
     Dates: start: 20140610, end: 20140610
  2. CAMPTO [Suspect]
     Active Substance: IRINOTECAN
     Dosage: 108.6 MG (180 MG), CYCLIC (1X/DAY)
     Route: 041
     Dates: start: 20140929, end: 20140929
  3. CAMPTO [Suspect]
     Active Substance: IRINOTECAN
     Dosage: 108.6 MG (180 MG), CYCLIC (1X/DAY)
     Route: 041
     Dates: start: 20141110, end: 20141110
  4. ELPLAT [Suspect]
     Active Substance: OXALIPLATIN
     Dosage: 84 MG/M2 (140 MG), CYCLIC (1X/DAY)
     Route: 041
     Dates: start: 20140610, end: 20140610
  5. ELPLAT [Suspect]
     Active Substance: OXALIPLATIN
     Dosage: 78.4 MG (130 MG), CYCLIC (1X/DAY)
     Route: 041
     Dates: start: 20140929, end: 20140929
  6. ELPLAT [Suspect]
     Active Substance: OXALIPLATIN
     Dosage: 78.4 MG (130 MG), CYCLIC (1X/DAY)
     Route: 041
     Dates: start: 20141110, end: 20141110
  7. CAMPTO [Suspect]
     Active Substance: IRINOTECAN
     Dosage: 144.8 MG/M2 (240 MG), CYCLIC (1X/DAY)
     Route: 041
     Dates: start: 20140722, end: 20140722
  8. ELPLAT [Suspect]
     Active Substance: OXALIPLATIN
     Indication: PANCREATIC CARCINOMA
     Dosage: 84 MG/M2 (140 MG), CYCLIC (1X/DAY)
     Route: 041
     Dates: start: 20140522, end: 20140522
  9. ELPLAT [Suspect]
     Active Substance: OXALIPLATIN
     Dosage: 84 MG/M2 (140 MG), CYCLIC (1X/DAY)
     Route: 041
     Dates: start: 20140722, end: 20140722
  10. ELPLAT [Suspect]
     Active Substance: OXALIPLATIN
     Dosage: 78.4 MG (130 MG), CYCLIC (1X/DAY)
     Route: 041
     Dates: start: 20140818, end: 20140818
  11. 5-FU [Concomitant]
     Active Substance: FLUOROURACIL
     Dosage: 2261.8 MG/M2 (3750 MG), CYCLIC (DAYS 1-2 CONTINUOUS)
     Route: 042
     Dates: start: 20141110, end: 20141111
  12. LEVOFOLINATE YAKULT [Suspect]
     Active Substance: LEVOLEUCOVORIN CALCIUM
     Dosage: 199 MG/M2 (330 MG), CYCLIC (1X/DAY)
     Route: 041
     Dates: start: 20140610, end: 20140610
  13. LEVOFOLINATE YAKULT [Suspect]
     Active Substance: LEVOLEUCOVORIN CALCIUM
     Dosage: 187 MG/M2 (310 MG), CYCLIC (1X/DAY)
     Route: 041
     Dates: start: 20140929, end: 20140929
  14. LEVOFOLINATE YAKULT [Suspect]
     Active Substance: LEVOLEUCOVORIN CALCIUM
     Dosage: 187 MG/M2 (310 MG), CYCLIC (1X/DAY)
     Route: 041
     Dates: start: 20141020, end: 20141020
  15. 5-FU [Concomitant]
     Active Substance: FLUOROURACIL
     Dosage: 2352.2 MG/M2 (3900 MG), CYCLIC (DAYS 1-2 CONTINUOUS INFUSION)
     Route: 042
     Dates: start: 20140610, end: 20140611
  16. 5-FU [Concomitant]
     Active Substance: FLUOROURACIL
     Dosage: 2261.8 MG/M2 (3750 MG), CYCLIC (DAYS 1-2 CONTINUOUS)
     Route: 042
     Dates: start: 20140929, end: 20140930
  17. CAMPTO [Suspect]
     Active Substance: IRINOTECAN
     Dosage: 108.6 MG (180 MG), CYCLIC (1X/DAY)
     Route: 041
     Dates: start: 20141020, end: 20141020
  18. LEVOFOLINATE YAKULT [Suspect]
     Active Substance: LEVOLEUCOVORIN CALCIUM
     Dosage: 187 MG/M2 (310 MG), CYCLIC (1X/DAY)
     Route: 041
     Dates: start: 20140818, end: 20140818
  19. LEVOFOLINATE YAKULT [Suspect]
     Active Substance: LEVOLEUCOVORIN CALCIUM
     Dosage: 310 MG, 1X/DAY
     Route: 041
     Dates: start: 20141110, end: 20141110
  20. CAMPTO [Suspect]
     Active Substance: IRINOTECAN
     Indication: PANCREATIC CARCINOMA METASTATIC
     Dosage: 144.8 MG/M2 (240 MG), CYCLIC (1X/DAY)
     Route: 041
     Dates: start: 20140522, end: 20140522
  21. CAMPTO [Suspect]
     Active Substance: IRINOTECAN
     Dosage: 108.6 MG (180 MG), CYCLIC (1X/DAY)
     Route: 041
     Dates: start: 20140818, end: 20140818
  22. CAMPTO [Suspect]
     Active Substance: IRINOTECAN
     Dosage: 108.6 MG (180 MG), CYCLIC (1X/DAY)
     Route: 041
     Dates: start: 20140908, end: 20140908
  23. LEVOFOLINATE YAKULT [Suspect]
     Active Substance: LEVOLEUCOVORIN CALCIUM
     Indication: PANCREATIC CARCINOMA
     Dosage: 199 MG/M2 (330 MG), CYCLIC (1X/DAY)
     Route: 041
     Dates: start: 20140522, end: 20140522
  24. LEVOFOLINATE YAKULT [Suspect]
     Active Substance: LEVOLEUCOVORIN CALCIUM
     Dosage: 187 MG/M2 (310 MG), CYCLIC (1X/DAY)
     Route: 041
     Dates: start: 20140908, end: 20140908
  25. 5-FU [Concomitant]
     Active Substance: FLUOROURACIL
     Dosage: 2352.2 MG/M2 (3900 MG), CYCLIC (DAYS 1-2 CONTINUOUS INFUSION)
     Route: 042
     Dates: start: 20140908, end: 20140909
  26. ELPLAT [Suspect]
     Active Substance: OXALIPLATIN
     Dosage: 78.4 MG (130 MG), CYCLIC (1X/DAY)
     Route: 041
     Dates: start: 20141020, end: 20141020
  27. 5-FU [Concomitant]
     Active Substance: FLUOROURACIL
     Dosage: 2352.2 MG/M2 (3900 MG), CYCLIC (DAYS 1-2 CONTINUOUS INFUSION)
     Route: 042
     Dates: start: 20140722, end: 20140723
  28. ELPLAT [Suspect]
     Active Substance: OXALIPLATIN
     Dosage: 78.4 MG (130 MG), CYCLIC (1X/DAY)
     Route: 041
     Dates: start: 20140908, end: 20140908
  29. LEVOFOLINATE YAKULT [Suspect]
     Active Substance: LEVOLEUCOVORIN CALCIUM
     Dosage: 199 MG/M2 (330 MG), CYCLIC (1X/DAY)
     Route: 041
     Dates: start: 20140722, end: 20140722
  30. 5-FU [Concomitant]
     Active Substance: FLUOROURACIL
     Indication: PANCREATIC CARCINOMA
     Dosage: 2352.2 MG/M2 (3900 MG), CYCLIC (DAYS 1-2 CONTINUOUS INFUSION)
     Route: 042
     Dates: start: 20140522, end: 20140523
  31. 5-FU [Concomitant]
     Active Substance: FLUOROURACIL
     Dosage: 2352.2 MG/M2 (3900 MG), CYCLIC (DAYS 1-2 CONTINUOUS INFUSION)
     Route: 042
     Dates: start: 20140818, end: 20140819

REACTIONS (17)
  - Febrile neutropenia [Unknown]
  - Duodenal stenosis [Unknown]
  - Pyrexia [Unknown]
  - Enteritis infectious [Unknown]
  - Diarrhoea [Unknown]
  - Fatigue [Unknown]
  - Haemoglobin decreased [Unknown]
  - Biliary tract infection [Unknown]
  - Neutrophil count decreased [Unknown]
  - Decreased appetite [Unknown]
  - White blood cell count decreased [Unknown]
  - Peripheral sensory neuropathy [Unknown]
  - Anal fistula [Unknown]
  - Aspartate aminotransferase increased [Unknown]
  - Blood bilirubin increased [Unknown]
  - Nausea [Unknown]
  - Vomiting [Unknown]

NARRATIVE: CASE EVENT DATE: 20140603
